FAERS Safety Report 5596266-5 (Version None)
Quarter: 2007Q4

REPORT INFORMATION
  Report Type: 
  Country: None (occurrence: None)
  Receive Date: 20071218
  Receipt Date: 20070320
  Transmission Date: 20080405
  Serious: Yes (Other)
  Sender: FDA-Public Use
  Company Number: 2006034269

PATIENT
  Age: 53 Year
  Sex: Female
  Weight: 83.9 kg

DRUGS (1)
  1. BEXTRA [Suspect]
     Indication: ARTHRITIS
     Dosage: 20 OR 40 MG (20 MG, AS NECESSARY)
     Dates: start: 20020802, end: 20040226

REACTIONS (1)
  - MYOCARDIAL INFARCTION [None]
